FAERS Safety Report 4528325-X (Version None)
Quarter: 2004Q4

REPORT INFORMATION
  Report Type: 
  Country: None (occurrence: None)
  Receive Date: 20041130
  Receipt Date: 20040910
  Transmission Date: 20050328
  Serious: Yes (Other)
  Sender: FDA-Public Use
  Company Number: WAES 0409USA00899

PATIENT
  Age: 51 Year
  Sex: Female
  Weight: 96.1626 kg

DRUGS (5)
  1. ZETIA [Suspect]
     Indication: HYPERLIPIDAEMIA
     Dosage: 10 MG/DAILY/PO
     Route: 048
     Dates: start: 20040905, end: 20040909
  2. ALTACE [Concomitant]
  3. CRESTOR [Concomitant]
  4. TOPROL-XL [Concomitant]
  5. ASPIRIN [Concomitant]

REACTIONS (2)
  - OEDEMA PERIPHERAL [None]
  - RASH MACULO-PAPULAR [None]
